FAERS Safety Report 24757523 (Version 1)
Quarter: 2024Q4

REPORT INFORMATION
  Report Type: Spontaneous
  Country: TR (occurrence: TR)
  Receive Date: 20241220
  Receipt Date: 20241220
  Transmission Date: 20250115
  Serious: Yes (Other)
  Sender: STRIDES
  Company Number: TR-STRIDES ARCOLAB LIMITED-2024SP016800

PATIENT
  Age: 41 Year
  Sex: Female

DRUGS (2)
  1. METHYLDOPA [Suspect]
     Active Substance: METHYLDOPA
     Indication: Pre-eclampsia
     Dosage: UNK
     Route: 065
  2. DILTIAZEM [Suspect]
     Active Substance: DILTIAZEM
     Indication: Pre-eclampsia
     Dosage: UNK
     Route: 065

REACTIONS (3)
  - Abortion induced [Unknown]
  - Maternal exposure during pregnancy [Unknown]
  - Off label use [Unknown]
